FAERS Safety Report 4462666-X (Version None)
Quarter: 2004Q3

REPORT INFORMATION
  Report Type: 
  Country: None (occurrence: None)
  Receive Date: 20040924
  Receipt Date: 20040924
  Transmission Date: 20050211
  Serious: No
  Sender: FDA-Public Use
  Company Number: None

PATIENT

DRUGS (2)
  1. INTRON A [Suspect]
     Indication: HEPATITIS C
     Dosage: 3 MILLIO MON,WED, IM
     Route: 030
  2. INTRON A [Suspect]

REACTIONS (1)
  - MEDICATION ERROR [None]
